FAERS Safety Report 8313515-0 (Version None)
Quarter: 2012Q2

REPORT INFORMATION
  Report Type: 
  Country: None (occurrence: None)
  Receive Date: 20120426
  Receipt Date: 20120426
  Transmission Date: 20120825
  Serious: Yes (Hospitalization)
  Sender: FDA-Public Use
  Company Number: US-JNJFOC-20120407312

PATIENT
  Sex: Male
  Weight: 115.21 kg

DRUGS (9)
  1. AMBIEN [Suspect]
     Indication: SLEEP DISORDER
     Dosage: AS NEEDED
     Route: 048
  2. RISPERDAL CONSTA [Suspect]
     Indication: SCHIZOPHRENIA
     Route: 030
     Dates: start: 20090101
  3. HYDROCHLOROTHIAZIDE [Concomitant]
     Indication: HYPERTENSION
     Route: 048
     Dates: start: 20100101
  4. LISINOPRIL [Concomitant]
     Indication: HYPERTENSION
     Route: 048
     Dates: start: 20090101
  5. RISPERDAL CONSTA [Suspect]
     Route: 030
     Dates: start: 20070101, end: 20080101
  6. RISPERDAL CONSTA [Suspect]
     Route: 030
     Dates: start: 20070101, end: 20080101
  7. COREG [Concomitant]
     Indication: HYPERTENSION
     Route: 048
     Dates: start: 20100101
  8. RISPERDAL CONSTA [Suspect]
     Indication: BIPOLAR DISORDER
     Route: 030
     Dates: start: 20090101
  9. LAMICTAL [Concomitant]
     Indication: BIPOLAR DISORDER
     Route: 048
     Dates: start: 19970101

REACTIONS (7)
  - MIDDLE INSOMNIA [None]
  - INITIAL INSOMNIA [None]
  - PAIN IN EXTREMITY [None]
  - HOSPITALISATION [None]
  - OEDEMA PERIPHERAL [None]
  - SKIN DISCOLOURATION [None]
  - NEEDLE ISSUE [None]
